FAERS Safety Report 9808819 (Version 3)
Quarter: 2014Q3

REPORT INFORMATION
  Report Type: Spontaneous
  Country: US (occurrence: US)
  Receive Date: 20140110
  Receipt Date: 20140904
  Transmission Date: 20150326
  Serious: Yes (Hospitalization, Other)
  Sender: FDA-Public Use
  Company Number: US-009507513-1401USA003361

PATIENT
  Sex: Female

DRUGS (1)
  1. NUVARING [Suspect]
     Active Substance: ETHINYL ESTRADIOL\ETONOGESTREL
     Indication: CONTRACEPTION
     Dosage: UNK
     Route: 067
     Dates: start: 200703, end: 20101107

REACTIONS (16)
  - Vena cava filter insertion [Unknown]
  - Headache [Unknown]
  - Pain [Unknown]
  - Pulmonary embolism [Unknown]
  - Carpal tunnel syndrome [Unknown]
  - Temperature intolerance [Unknown]
  - Uterine leiomyoma [Unknown]
  - Packed red blood cell transfusion [Unknown]
  - Attention deficit/hyperactivity disorder [Unknown]
  - Impaired fasting glucose [Unknown]
  - Acanthosis nigricans [Unknown]
  - Anaemia [Unknown]
  - Urinary incontinence [Unknown]
  - Deep vein thrombosis [Unknown]
  - Depression [Unknown]
  - Gastrooesophageal reflux disease [Unknown]

NARRATIVE: CASE EVENT DATE: 201002
